FAERS Safety Report 4556114-9 (Version None)
Quarter: 2005Q1

REPORT INFORMATION
  Report Type: 
  Country: None (occurrence: None)
  Receive Date: 20050118
  Receipt Date: 20040916
  Transmission Date: 20050727
  Serious: Yes (Hospitalization)
  Sender: FDA-Public Use
  Company Number: A03200403482

PATIENT
  Age: 60 Year
  Sex: Male

DRUGS (3)
  1. UROXATRAL [Suspect]
     Dosage: ORAL
     Route: 048
  2. ENALAPRIL MALEATE [Concomitant]
  3. NITROGLYCERIN [Concomitant]

REACTIONS (1)
  - SYNCOPE [None]
